FAERS Safety Report 24348424 (Version 1)
Quarter: 2024Q3

REPORT INFORMATION
  Report Type: Spontaneous
  Country: IT (occurrence: IT)
  Receive Date: 20240923
  Receipt Date: 20240923
  Transmission Date: 20241017
  Serious: Yes (Other)
  Sender: AUROBINDO
  Company Number: IT-MLMSERVICE-20240902-PI178241-00034-1

PATIENT
  Sex: Male
  Weight: 3.2 kg

DRUGS (1)
  1. AMIODARONE [Suspect]
     Active Substance: AMIODARONE
     Indication: Dilated cardiomyopathy
     Dosage: UNK
     Route: 065

REACTIONS (1)
  - Atrial tachycardia [Unknown]
